FAERS Safety Report 6542518-1 (Version None)
Quarter: 2010Q1

REPORT INFORMATION
  Report Type: 
  Country: None (occurrence: None)
  Receive Date: 20100119
  Receipt Date: 20100114
  Transmission Date: 20100710
  Serious: Yes (Hospitalization)
  Sender: FDA-Public Use
  Company Number: US-JNJFOC-20100105299

PATIENT
  Sex: Female

DRUGS (9)
  1. RISPERDAL CONSTA [Suspect]
     Indication: DRUG USE FOR UNKNOWN INDICATION
     Route: 030
  2. PROCARDIA XL [Concomitant]
     Route: 048
  3. ZOCOR [Concomitant]
     Route: 048
  4. PLAVIX [Concomitant]
     Route: 048
  5. LASIX [Concomitant]
     Route: 048
  6. KLOR-CON [Concomitant]
     Route: 048
  7. DIOVAN [Concomitant]
  8. METFORMIN HCL [Concomitant]
     Route: 048
  9. TAMOXIFEN CITRATE [Concomitant]
     Route: 048

REACTIONS (3)
  - DEVICE LEAKAGE [None]
  - GASTROINTESTINAL HAEMORRHAGE [None]
  - INAPPROPRIATE SCHEDULE OF DRUG ADMINISTRATION [None]
